FAERS Safety Report 8824633 (Version 2)
Quarter: 2012Q4

REPORT INFORMATION
  Report Type: 
  Country: DE (occurrence: DE)
  Receive Date: 20121004
  Receipt Date: 20121122
  Transmission Date: 20130627
  Serious: Yes (Hospitalization, Other)
  Sender: FDA-Public Use
  Company Number: PHHY2012DE027462

PATIENT
  Sex: Male
  Weight: 34 kg

DRUGS (4)
  1. EXJADE [Suspect]
     Indication: IRON OVERLOAD
     Dosage: 550 mg, QD
     Route: 048
  2. PENICILLIN [Concomitant]
     Dosage: 1.5 million units
     Route: 042
  3. OMEPRAZOL [Concomitant]
     Dosage: 40 mg, QD
  4. OMEPRAZOL [Concomitant]
     Dosage: 20 mg, BID

REACTIONS (5)
  - Duodenal ulcer [Recovered/Resolved]
  - Hypokalaemia [Unknown]
  - Abdominal pain [Unknown]
  - Abdominal pain upper [Unknown]
  - Diarrhoea haemorrhagic [Recovered/Resolved]
